FAERS Safety Report 9050390 (Version 1)
Quarter: 2013Q1

REPORT INFORMATION
  Report Type: Spontaneous
  Country: US (occurrence: US)
  Receive Date: 20130205
  Receipt Date: 20130205
  Transmission Date: 20140127
  Serious: No
  Sender: FDA-Public Use
  Company Number: US-PFIZER INC-2013041249

PATIENT
  Age: 48 Year
  Sex: Male
  Weight: 95 kg

DRUGS (3)
  1. GENOTROPIN [Suspect]
     Indication: HYPOPITUITARISM
     Dosage: 5 MG, DAILY
     Dates: end: 201301
  2. GENOTROPIN [Suspect]
     Dosage: 5 MG, EVERY OTHER DAY
     Dates: start: 201301
  3. LEVOTHYROXINE [Concomitant]
     Indication: HYPOPITUITARISM
     Dosage: 150 UG, DAILY

REACTIONS (3)
  - Incorrect dose administered [Unknown]
  - Blood test abnormal [Unknown]
  - Blood glucose increased [Unknown]
